FAERS Safety Report 7786624-2 (Version None)
Quarter: 2011Q3

REPORT INFORMATION
  Report Type: 
  Country: None (occurrence: None)
  Receive Date: 20110929
  Receipt Date: 20110916
  Transmission Date: 20111222
  Serious: Yes (Hospitalization, Other)
  Sender: FDA-Public Use
  Company Number: CA-ELI_LILLY_AND_COMPANY-CA201109004550

PATIENT
  Sex: Female

DRUGS (3)
  1. ZYPREXA [Suspect]
     Dosage: 15 MG, QD
  2. ZYPREXA [Suspect]
     Dosage: 7.5 MG, QD
  3. ZYPREXA [Suspect]
     Dosage: 10 MG, QD

REACTIONS (9)
  - PANCREATITIS [None]
  - OESOPHAGEAL SPASM [None]
  - RENAL ABSCESS [None]
  - JUGULAR VEIN THROMBOSIS [None]
  - ABDOMINAL PAIN [None]
  - GASTROOESOPHAGEAL REFLUX DISEASE [None]
  - DYSPAREUNIA [None]
  - VOMITING [None]
  - INFECTION [None]
